FAERS Safety Report 6228649-4 (Version None)
Quarter: 2009Q2

REPORT INFORMATION
  Report Type: 
  Country: None (occurrence: None)
  Receive Date: 20090612
  Receipt Date: 20090602
  Transmission Date: 20091009
  Serious: Yes (Hospitalization)
  Sender: FDA-Public Use
  Company Number: DE-ABBOTT-09P-062-0578295-00

PATIENT
  Sex: Female
  Weight: 43 kg

DRUGS (1)
  1. ENANTONE 3.75 MG [Suspect]
     Indication: TRUE PRECOCIOUS PUBERTY
     Route: 058
     Dates: start: 20071101

REACTIONS (1)
  - COELIAC DISEASE [None]
